FAERS Safety Report 14812763 (Version 1)
Quarter: 2018Q2

REPORT INFORMATION
  Report Type: Spontaneous
  Country: FR (occurrence: FR)
  Receive Date: 20180426
  Receipt Date: 20180426
  Transmission Date: 20180711
  Serious: Yes (Other)
  Sender: FDA-Public Use
  Company Number: FR-MERCK KGAA-2046518

PATIENT
  Sex: Female

DRUGS (1)
  1. NOVOTHYROX [Suspect]
     Active Substance: LEVOTHYROXINE SODIUM
     Indication: THYROID DISORDER

REACTIONS (17)
  - Hypertension [None]
  - Fatigue [None]
  - Pain [None]
  - Irritability [None]
  - Abdominal pain upper [None]
  - Loss of personal independence in daily activities [None]
  - Alopecia [None]
  - Weight increased [None]
  - Mood swings [None]
  - Impaired driving ability [None]
  - Dry skin [None]
  - Atrophy [None]
  - Myalgia [None]
  - Headache [None]
  - Palpitations [None]
  - Aggression [None]
  - Nervousness [None]
